FAERS Safety Report 10505011 (Version 1)
Quarter: 2014Q3

REPORT INFORMATION
  Report Type: Spontaneous
  Country: US (occurrence: None)
  Receive Date: 20140926
  Receipt Date: 20140926
  Transmission Date: 20150326
  Serious: Yes (Other)
  Sender: FDA-Public Use
  Company Number: US-MDC-14-0083

PATIENT
  Age: 47 Year
  Sex: Male

DRUGS (1)
  1. CLEVIPREX [Suspect]
     Active Substance: CLEVIDIPINE
     Indication: MALIGNANT HYPERTENSION
     Dosage: 1MG/HR (INITIAL) AND 16MG/HR (MAX), INFUSION
     Dates: start: 20131105, end: 20131106

REACTIONS (1)
  - Atrial fibrillation [None]

NARRATIVE: CASE EVENT DATE: 20131106
